FAERS Safety Report 7602356-5 (Version None)
Quarter: 2011Q3

REPORT INFORMATION
  Report Type: 
  Country: None (occurrence: None)
  Receive Date: 20110712
  Receipt Date: 20110707
  Transmission Date: 20111222
  Serious: Yes (Hospitalization, Other)
  Sender: FDA-Public Use
  Company Number: AT-BRISTOL-MYERS SQUIBB COMPANY-15812548

PATIENT
  Age: 24 Year
  Sex: Female

DRUGS (5)
  1. LORAZEPAM [Concomitant]
  2. ESCITALOPRAM [Suspect]
     Dosage: 10MG
  3. TRUXAL [Suspect]
     Dosage: 30MG
  4. TRAZODONE HCL [Suspect]
  5. ABILIFY [Suspect]
     Indication: BORDERLINE PERSONALITY DISORDER
     Route: 048
     Dates: start: 20110427

REACTIONS (2)
  - PULMONARY EMBOLISM [None]
  - SUICIDAL IDEATION [None]
